FAERS Safety Report 5425350-1 (Version None)
Quarter: 2007Q3

REPORT INFORMATION
  Report Type: 
  Country: None (occurrence: None)
  Receive Date: 20070824
  Receipt Date: 20070810
  Transmission Date: 20080115
  Serious: Yes (Death)
  Sender: FDA-Public Use
  Company Number: GB-SHR-GB-2007-030618

PATIENT

DRUGS (3)
  1. FLUDARABINE PHOSPHATE [Suspect]
     Indication: CHRONIC LYMPHOCYTIC LEUKAEMIA
     Dosage: 25 MG/M2, 1X/DAY
     Route: 042
  2. COTRIM [Concomitant]
     Indication: PROPHYLAXIS
  3. CYCLOPHOSPHAMIDE [Suspect]
     Indication: CHRONIC LYMPHOCYTIC LEUKAEMIA
     Dosage: 250 MG/M2, 1X/DAY
     Route: 042

REACTIONS (1)
  - CORONARY ARTERY THROMBOSIS [None]
